FAERS Safety Report 24532980 (Version 1)
Quarter: 2024Q4

REPORT INFORMATION
  Report Type: Other
  Country: PT (occurrence: PT)
  Receive Date: 20241022
  Receipt Date: 20241022
  Transmission Date: 20250114
  Serious: Yes (Life-Threatening)
  Sender: BIOCON
  Company Number: None

PATIENT

DRUGS (3)
  1. TRASTUZUMAB [Suspect]
     Active Substance: TRASTUZUMAB
     Indication: Breast cancer
     Dosage: 432 MILLIGRAM, QD (INJECTABLE SOLUTION)
     Route: 042
     Dates: start: 20241007, end: 20241007
  2. PERJETA [Suspect]
     Active Substance: PERTUZUMAB
     Indication: Breast cancer
     Dosage: 840 MILLIGRAM, QD
     Route: 042
     Dates: start: 20241007, end: 20241007
  3. PACLITAXEL [Suspect]
     Active Substance: PACLITAXEL
     Indication: Breast cancer
     Dosage: 116.8 MILLIGRAM, QD
     Route: 042
     Dates: start: 20241007, end: 20241007

REACTIONS (4)
  - Flushing [Recovered/Resolved]
  - Erythema [Recovered/Resolved]
  - Dyspnoea [Recovered/Resolved]
  - Cough [Recovered/Resolved]

NARRATIVE: CASE EVENT DATE: 20241007
